FAERS Safety Report 14406398 (Version 2)
Quarter: 2018Q1

REPORT INFORMATION
  Report Type: Report from Study
  Country: CA (occurrence: CA)
  Receive Date: 20180118
  Receipt Date: 20180130
  Transmission Date: 20180509
  Serious: Yes (Other)
  Sender: FDA-Public Use
  Company Number: CA-GLAXOSMITHKLINE-CA2018GSK008451

PATIENT
  Age: 37 Year
  Sex: Female

DRUGS (1)
  1. MEPOLIZUMAB [Suspect]
     Active Substance: MEPOLIZUMAB
     Indication: ASTHMA
     Dosage: 100 MG, Z
     Route: 042
     Dates: start: 20171222

REACTIONS (8)
  - Joint swelling [Recovering/Resolving]
  - Emotional distress [Unknown]
  - Temperature intolerance [Unknown]
  - Sialoadenitis [Recovered/Resolved]
  - Swelling face [Recovered/Resolved]
  - Peripheral swelling [Recovering/Resolving]
  - Night sweats [Unknown]
  - Lacrimation increased [Unknown]

NARRATIVE: CASE EVENT DATE: 20171226
